FAERS Safety Report 4709036-4 (Version None)
Quarter: 2005Q3

REPORT INFORMATION
  Report Type: 
  Country: None (occurrence: None)
  Receive Date: 20050707
  Receipt Date: 20050622
  Transmission Date: 20060218
  Serious: Yes (Death)
  Sender: FDA-Public Use
  Company Number: 2005049681

PATIENT
  Age: 46 Year
  Sex: Female
  Weight: 36 kg

DRUGS (9)
  1. IRINOTECAN HCL [Suspect]
     Indication: COLON CANCER
     Dosage: 200 MG (CYCLICAL), INTRAVENOUS
     Route: 042
     Dates: start: 20050107, end: 20050107
  2. IRINOTECAN HCL [Suspect]
     Indication: COLON CANCER
     Dosage: 200 MG (CYCLICAL), INTRAVENOUS
     Route: 042
     Dates: start: 20050121, end: 20050121
  3. ULCERMIN (SUCRALFATE) [Concomitant]
  4. LOXONIN (LOXOPROFEN SODIUM) [Concomitant]
  5. URSODIOL [Concomitant]
  6. LASIX [Concomitant]
  7. NOVAMIN (PROCHLORPERAZINE) [Concomitant]
  8. FENTANYL [Concomitant]
  9. FAMOTIDINE [Concomitant]

REACTIONS (12)
  - ASCITES [None]
  - BLOOD PRESSURE SYSTOLIC DECREASED [None]
  - DEPRESSED LEVEL OF CONSCIOUSNESS [None]
  - DISSEMINATED INTRAVASCULAR COAGULATION [None]
  - HAEMATOCHEZIA [None]
  - INTESTINAL ISCHAEMIA [None]
  - METASTASES TO LIVER [None]
  - METASTASES TO SKIN [None]
  - ORAL INTAKE REDUCED [None]
  - PANCYTOPENIA [None]
  - RENAL IMPAIRMENT [None]
  - SEPSIS [None]
